FAERS Safety Report 6239038-0 (Version None)
Quarter: 2009Q2

REPORT INFORMATION
  Report Type: 
  Country: None (occurrence: None)
  Receive Date: 20090622
  Receipt Date: 20090610
  Transmission Date: 20091009
  Serious: Yes (Other)
  Sender: FDA-Public Use
  Company Number: PHHY2009JP22836

PATIENT

DRUGS (2)
  1. FEMARA [Suspect]
     Indication: BREAST CANCER
     Route: 048
  2. S-1(TEGAFUR/GIMESTAT/OTASTAT POTASSIUM COMBINED DRUG) [Concomitant]

REACTIONS (1)
  - PULMONARY FIBROSIS [None]
